FAERS Safety Report 25207546 (Version 1)
Quarter: 2025Q2

REPORT INFORMATION
  Report Type: Spontaneous
  Country: US (occurrence: US)
  Receive Date: 20250417
  Receipt Date: 20250417
  Transmission Date: 20250717
  Serious: Yes (Hospitalization, Other)
  Sender: SANOFI AVENTIS
  Company Number: US-DialogSolutions-SAAVPROD-PI760477-C1

PATIENT
  Age: 65 Year
  Sex: Male

DRUGS (4)
  1. HYDROCORTISONE [Suspect]
     Active Substance: HYDROCORTISONE
  2. KETOCONAZOLE [Concomitant]
     Active Substance: KETOCONAZOLE
  3. ERTAPENEM [Concomitant]
     Active Substance: ERTAPENEM
     Indication: Pyrexia
  4. ERTAPENEM [Concomitant]
     Active Substance: ERTAPENEM
     Indication: Pathogen resistance

REACTIONS (2)
  - Duodenal ulcer haemorrhage [Unknown]
  - Gastrointestinal haemorrhage [Unknown]
